FAERS Safety Report 17904839 (Version 1)
Quarter: 2020Q2

REPORT INFORMATION
  Report Type: Spontaneous
  Country: JP (occurrence: JP)
  Receive Date: 20200617
  Receipt Date: 20200617
  Transmission Date: 20200714
  Serious: Yes (Other)
  Sender: FDA-Public Use
  Company Number: JP-GLAXOSMITHKLINE-JP2020099779

PATIENT
  Sex: Female

DRUGS (3)
  1. DEPAS (ETIZOLAM) [Concomitant]
     Active Substance: ETIZOLAM
     Indication: AUTONOMIC NERVOUS SYSTEM IMBALANCE
     Dosage: UNK
  2. RELVAR ELLIPTA [Suspect]
     Active Substance: FLUTICASONE FUROATE\VILANTEROL TRIFENATATE
     Dosage: 200 ?G
     Route: 055
  3. MUCODYNE [Concomitant]
     Active Substance: CARBOCYSTEINE
     Indication: RHINORRHOEA
     Dosage: 250 MG

REACTIONS (6)
  - Malaise [Unknown]
  - Bradycardia [Unknown]
  - Thirst [Unknown]
  - Dysgeusia [Unknown]
  - Dysphonia [Unknown]
  - Upper-airway cough syndrome [Unknown]

NARRATIVE: CASE EVENT DATE: 20200610
